FAERS Safety Report 24353193 (Version 1)
Quarter: 2024Q3

REPORT INFORMATION
  Report Type: Spontaneous
  Country: FR (occurrence: FR)
  Receive Date: 20240923
  Receipt Date: 20240923
  Transmission Date: 20241016
  Serious: Yes (Hospitalization)
  Sender: PFIZER
  Company Number: None

PATIENT
  Age: 38 Year
  Sex: Male
  Weight: 61 kg

DRUGS (3)
  1. PIPERACILLIN SODIUM\TAZOBACTAM SODIUM [Suspect]
     Active Substance: PIPERACILLIN SODIUM\TAZOBACTAM SODIUM
     Indication: Device related infection
     Dosage: 12 G, 1X/DAY
     Route: 042
     Dates: start: 20240831
  2. CIPROFLOXACIN [Suspect]
     Active Substance: CIPROFLOXACIN
     Indication: Device related infection
     Dosage: 1.5 G, 1X/DAY
     Route: 042
     Dates: start: 20240903
  3. DAPTOMYCIN [Concomitant]
     Active Substance: DAPTOMYCIN
     Dosage: UNK

REACTIONS (2)
  - Mixed liver injury [Recovering/Resolving]
  - Off label use [Unknown]

NARRATIVE: CASE EVENT DATE: 20240831
